FAERS Safety Report 5383049-4 (Version None)
Quarter: 2007Q3

REPORT INFORMATION
  Report Type: 
  Country: None (occurrence: None)
  Receive Date: 20070705
  Receipt Date: 20070619
  Transmission Date: 20080115
  Serious: Yes (Congenital Anomaly)
  Sender: FDA-Public Use
  Company Number: 2007RR-08150

PATIENT
  Sex: 0

DRUGS (3)
  1. FLUOXETINE [Suspect]
     Dosage: 20 MG, ORAL
     Route: 048
  2. FERROUS SULPHATE (IRON) [Concomitant]
  3. SALBUTAMOL (SALBUTAMOL) [Concomitant]

REACTIONS (3)
  - AUTISM [None]
  - CONGENITAL ANOMALY [None]
  - DRUG EXPOSURE DURING PREGNANCY [None]
